FAERS Safety Report 8588866-5 (Version None)
Quarter: 2012Q3

REPORT INFORMATION
  Report Type: 
  Country: None (occurrence: None)
  Receive Date: 20120813
  Receipt Date: 20120806
  Transmission Date: 20120928
  Serious: Yes (Hospitalization)
  Sender: FDA-Public Use
  Company Number: BR-PFIZER INC-2012190863

PATIENT
  Age: 52 Year
  Sex: Female
  Weight: 65 kg

DRUGS (3)
  1. LOSARTAN [Concomitant]
     Indication: BLOOD PRESSURE INCREASED
  2. LEVOTHYROXINE SODIUM [Concomitant]
     Indication: THYROID DISORDER
  3. LYRICA [Suspect]
     Indication: SURGERY
     Dosage: 75 MG (ONE CAPSULE), 2X/DAY
     Route: 048
     Dates: end: 20120629

REACTIONS (7)
  - DECREASED APPETITE [None]
  - INFLUENZA [None]
  - FATIGUE [None]
  - ASTHENIA [None]
  - RETCHING [None]
  - INSOMNIA [None]
  - GASTRITIS [None]
